FAERS Safety Report 8861969 (Version 3)
Quarter: 2012Q4

REPORT INFORMATION
  Report Type: 
  Country: US (occurrence: US)
  Receive Date: 20121025
  Receipt Date: 20121114
  Transmission Date: 20130627
  Serious: Yes (Hospitalization, Other)
  Sender: FDA-Public Use
  Company Number: US-JNJFOC-20121011219

PATIENT
  Sex: Male

DRUGS (16)
  1. XARELTO [Suspect]
     Indication: CEREBROVASCULAR ACCIDENT PROPHYLAXIS
     Route: 048
  2. XARELTO [Suspect]
     Indication: ATRIAL FIBRILLATION
     Route: 048
  3. JANUVIA [Concomitant]
     Route: 048
  4. AMIODARONE [Concomitant]
     Route: 048
  5. AVODART [Concomitant]
     Route: 048
  6. TOPROL XL [Concomitant]
     Route: 048
     Dates: end: 201209
  7. TOPROL XL [Concomitant]
     Route: 048
  8. CRESTOR [Concomitant]
     Route: 048
  9. LEVEMIR [Concomitant]
     Route: 058
  10. HUMALOG [Concomitant]
  11. LASIX [Concomitant]
     Route: 048
  12. TOPROL XL [Concomitant]
  13. DECADRON [Concomitant]
     Indication: MULTIPLE MYELOMA
     Dates: end: 201209
  14. REVLIMID [Concomitant]
     Indication: MULTIPLE MYELOMA
     Dates: start: 201209
  15. LORATADINE [Concomitant]
  16. CLINDAMYCIN [Concomitant]
     Indication: WOUND

REACTIONS (2)
  - Upper gastrointestinal haemorrhage [Recovered/Resolved]
  - Gastritis erosive [Unknown]
